FAERS Safety Report 7450386-9 (Version None)
Quarter: 2011Q2

REPORT INFORMATION
  Report Type: 
  Country: None (occurrence: None)
  Receive Date: 20110422
  Receipt Date: 20110412
  Transmission Date: 20111010
  Serious: Yes (Death)
  Sender: FDA-Public Use
  Company Number: 2011001775

PATIENT
  Age: 68 Year
  Sex: Male

DRUGS (2)
  1. VITAMIN D (EBGOCALCIFEROL) [Concomitant]
  2. ERLOTINIB HYDROCHLORIDE [Suspect]
     Indication: NON-SMALL CELL LUNG CANCER
     Dosage: (MG),ORAL
     Route: 048
     Dates: start: 20110201, end: 20110317

REACTIONS (1)
  - DEATH [None]
